FAERS Safety Report 21498014 (Version 1)
Quarter: 2022Q4

REPORT INFORMATION
  Report Type: Spontaneous
  Country: US (occurrence: US)
  Receive Date: 20221024
  Receipt Date: 20221024
  Transmission Date: 20230113
  Serious: Yes (Hospitalization)
  Sender: FDA-Public Use
  Company Number: US-AMGEN-USASP2022178587

PATIENT
  Age: 6 Month
  Sex: Male

DRUGS (1)
  1. CORLANOR [Suspect]
     Active Substance: IVABRADINE HYDROCHLORIDE
     Indication: Product used for unknown indication
     Dosage: 0.3 MILLIGRAM, AMPULE, ORAL SOLUTION
     Route: 048
     Dates: start: 20221013

REACTIONS (1)
  - Lung assist device therapy [Not Recovered/Not Resolved]

NARRATIVE: CASE EVENT DATE: 20221013
